FAERS Safety Report 8782012 (Version 3)
Quarter: 2014Q1

REPORT INFORMATION
  Report Type: Spontaneous
  Country: US (occurrence: US)
  Receive Date: 20120913
  Receipt Date: 20140317
  Transmission Date: 20141002
  Serious: Yes (Hospitalization, Other)
  Sender: FDA-Public Use
  Company Number: US-BAYER-2012-094500

PATIENT
  Age: 25 Year
  Sex: Female
  Weight: 77 kg

DRUGS (2)
  1. YAZ [Suspect]
     Dosage: UNK
     Dates: start: 200712, end: 201002
  2. IMITREX [Concomitant]
     Indication: MIGRAINE
     Dosage: UNK UNK, PRN
     Route: 048
     Dates: start: 20071213, end: 20101007

REACTIONS (9)
  - Cholecystectomy [None]
  - Cholelithiasis [None]
  - Pain [None]
  - Anxiety [None]
  - Emotional distress [None]
  - General physical health deterioration [None]
  - Injury [None]
  - Anhedonia [None]
  - Pain [None]
